FAERS Safety Report 22111686 (Version 1)
Quarter: 2023Q1

REPORT INFORMATION
  Report Type: Spontaneous
  Country: CA (occurrence: CA)
  Receive Date: 20230318
  Receipt Date: 20230318
  Transmission Date: 20230418
  Serious: Yes (Life-Threatening)
  Sender: FDA-Public Use
  Company Number: CA-002147023-NVSC2023CA061542

PATIENT
  Age: 58 Year
  Sex: Female
  Weight: 75.29 kg

DRUGS (1)
  1. VALSARTAN [Suspect]
     Active Substance: VALSARTAN
     Indication: Hypertension
     Dosage: 80 MG, QD
     Route: 048

REACTIONS (4)
  - Blood pressure inadequately controlled [Unknown]
  - Blood pressure increased [Unknown]
  - Hypertension [Unknown]
  - Product substitution issue [Unknown]
